FAERS Safety Report 8726827 (Version 2)
Quarter: 2015Q2

REPORT INFORMATION
  Report Type: Report from Study
  Country: US (occurrence: US)
  Receive Date: 20120816
  Receipt Date: 20150629
  Transmission Date: 20150821
  Serious: Yes (Hospitalization)
  Sender: FDA-Public Use
  Company Number: US-ROCHE-1098777

PATIENT
  Age: 40 Year
  Sex: Female

DRUGS (5)
  1. MORPHINE [Concomitant]
     Active Substance: MORPHINE
     Route: 065
  2. NITROSTAT [Concomitant]
     Active Substance: NITROGLYCERIN
     Route: 065
  3. ACTIVASE [Suspect]
     Active Substance: ALTEPLASE
     Indication: MYOCARDIAL INFARCTION
     Dosage: 2, 50 MG VIALS
     Route: 042
     Dates: start: 19920628
  4. ASPIRIN. [Concomitant]
     Active Substance: ASPIRIN
     Route: 065
  5. XYLOCAINE [Concomitant]
     Active Substance: LIDOCAINE HYDROCHLORIDE
     Dosage: 100 MG/ML
     Route: 065

REACTIONS (7)
  - Hypotension [Unknown]
  - Ventricular tachycardia [Unknown]
  - Pain in extremity [Unknown]
  - Pyrexia [Unknown]
  - Tachycardia [Unknown]
  - Chest pain [Unknown]
  - Bradycardia [Unknown]

NARRATIVE: CASE EVENT DATE: 19920628
